FAERS Safety Report 5861065-3 (Version None)
Quarter: 2008Q3

REPORT INFORMATION
  Report Type: 
  Country: None (occurrence: None)
  Receive Date: 20080826
  Receipt Date: 20080814
  Transmission Date: 20090109
  Serious: Yes (Other)
  Sender: FDA-Public Use
  Company Number: 2008SP014893

PATIENT
  Age: 61 Year
  Sex: Female
  Weight: 54.4316 kg

DRUGS (14)
  1. TEMODAR [Suspect]
     Indication: NEUROENDOCRINE TUMOUR
     Dosage: 220 MG; QD; PO
     Route: 048
     Dates: start: 20080301, end: 20080605
  2. TEMODAR [Suspect]
     Indication: OFF LABEL USE
     Dosage: 220 MG; QD; PO
     Route: 048
     Dates: start: 20080301, end: 20080605
  3. BACTRIM DS [Suspect]
     Indication: PROPHYLAXIS
     Dosage: ; TIW;
     Dates: start: 20080301, end: 20080325
  4. BENICAR [Concomitant]
  5. NEXIUM [Concomitant]
  6. TOPROL-XL [Concomitant]
  7. ACTONEL [Concomitant]
  8. CALCIUM [Concomitant]
  9. VITAMIN D [Concomitant]
  10. ATIVAN [Concomitant]
  11. ACYCLOVIR [Concomitant]
  12. ZOCOR [Concomitant]
  13. ASPIRIN [Concomitant]
  14. KYTRIL [Concomitant]

REACTIONS (26)
  - ACUTE SINUSITIS [None]
  - APLASTIC ANAEMIA [None]
  - ATRIAL SEPTAL DEFECT [None]
  - BLOOD GLUCOSE INCREASED [None]
  - BLOOD POTASSIUM DECREASED [None]
  - CONSTIPATION [None]
  - CORONARY ARTERY DISEASE [None]
  - DIARRHOEA [None]
  - DISEASE PROGRESSION [None]
  - DRUG INEFFECTIVE [None]
  - DYSPNOEA EXERTIONAL [None]
  - FATIGUE [None]
  - GASTROOESOPHAGEAL REFLUX DISEASE [None]
  - HEADACHE [None]
  - HOT FLUSH [None]
  - HYPERGASTRINAEMIA [None]
  - HYPOPHAGIA [None]
  - MIGRAINE [None]
  - OFF LABEL USE [None]
  - OPERATIVE HAEMORRHAGE [None]
  - PRURITUS GENERALISED [None]
  - RASH PRURITIC [None]
  - SCAB [None]
  - TYPE 1 DIABETES MELLITUS [None]
  - URINARY TRACT INFECTION [None]
  - WEIGHT DECREASED [None]
